FAERS Safety Report 11239464 (Version 1)
Quarter: 2015Q3

REPORT INFORMATION
  Report Type: Spontaneous
  Country: US (occurrence: US)
  Receive Date: 20150706
  Receipt Date: 20150706
  Transmission Date: 20151125
  Serious: Yes (Hospitalization, Other)
  Sender: FDA-Public Use
  Company Number: US-009507513-1506USA005487

PATIENT
  Age: 60 Year
  Sex: Male
  Weight: 97 kg

DRUGS (20)
  1. DAPTOMYCIN. [Suspect]
     Active Substance: DAPTOMYCIN
     Indication: PRODUCT USE ISSUE
  2. INVANZ [Concomitant]
     Active Substance: ERTAPENEM SODIUM
     Dosage: UNK
     Dates: start: 20140826, end: 20141021
  3. CHOLECALCIFEROL [Concomitant]
     Active Substance: CHOLECALCIFEROL
     Dosage: 5000 IU, UNK
  4. INSULIN GLARGINE [Concomitant]
     Active Substance: INSULIN GLARGINE
     Dosage: 100 UNK, UNK
  5. RIFAMPIN. [Concomitant]
     Active Substance: RIFAMPIN
     Dosage: UNK
     Dates: start: 20140915
  6. DAPTOMYCIN. [Suspect]
     Active Substance: DAPTOMYCIN
     Indication: CELLULITIS
     Dosage: 6.9 MG/KG, Q24H
     Route: 042
     Dates: start: 20140826, end: 20140910
  7. CURCUMIN [Concomitant]
     Active Substance: CURCUMIN
  8. DOCUSATE [Concomitant]
     Active Substance: DOCUSATE
     Dosage: UNK
  9. ERTAPENEM [Concomitant]
     Active Substance: ERTAPENEM
     Dosage: 1 G, UNK
  10. INSULIN ASPART [Concomitant]
     Active Substance: INSULIN ASPART
     Dosage: UNK
  11. SIMVASTATIN. [Concomitant]
     Active Substance: SIMVASTATIN
  12. ZOSYN [Concomitant]
     Active Substance: PIPERACILLIN SODIUM\TAZOBACTAM SODIUM
     Dosage: UNK
     Dates: start: 20140820, end: 20140826
  13. ZYVOX [Concomitant]
     Active Substance: LINEZOLID
     Dosage: UNK
     Dates: start: 20140820, end: 20140825
  14. CYANOCOBALAMIN. [Concomitant]
     Active Substance: CYANOCOBALAMIN
     Dosage: 100 MICROGRAM, UNKNOWN
  15. FERROUS SULFATE [Concomitant]
     Active Substance: FERROUS SULFATE\FERROUS SULFATE, DRIED
     Dosage: 325 MG, UNKNOWN
  16. METRONIDAZOLE. [Concomitant]
     Active Substance: METRONIDAZOLE
     Dosage: 0.75 %, UNKNOWN
  17. DAPTOMYCIN. [Suspect]
     Active Substance: DAPTOMYCIN
     Indication: GANGRENE
     Dosage: 5.15 MG/KG, Q24H
     Route: 042
     Dates: start: 20140912, end: 20140923
  18. ACETAMINOPHEN. [Concomitant]
     Active Substance: ACETAMINOPHEN
  19. OXYCODONE [Concomitant]
     Active Substance: OXYCODONE
     Dosage: 5 MG, UNK
     Route: 065
  20. MIRALAX [Concomitant]
     Active Substance: POLYETHYLENE GLYCOL 3350

REACTIONS (15)
  - Haemoglobin decreased [Unknown]
  - Nausea [Unknown]
  - Weight increased [Unknown]
  - Decreased appetite [Unknown]
  - Fatigue [Unknown]
  - Blood creatine phosphokinase increased [Recovered/Resolved]
  - Foot fracture [Unknown]
  - Upper-airway cough syndrome [Unknown]
  - Pyrexia [Recovered/Resolved with Sequelae]
  - Constipation [Unknown]
  - Dyspnoea [Unknown]
  - Oedema peripheral [Unknown]
  - Night sweats [Unknown]
  - Cough [Unknown]
  - Off label use [Unknown]

NARRATIVE: CASE EVENT DATE: 20141012
